FAERS Safety Report 8307681-0 (Version None)
Quarter: 2012Q2

REPORT INFORMATION
  Report Type: 
  Country: None (occurrence: None)
  Receive Date: 20120424
  Receipt Date: 20120424
  Transmission Date: 20120825
  Serious: Yes (Other)
  Sender: FDA-Public Use
  Company Number: None

PATIENT
  Age: 68 Year
  Sex: Female
  Weight: 80.739 kg

DRUGS (2)
  1. FEMARA [Concomitant]
     Indication: BREAST CANCER
     Route: 048
     Dates: start: 20101001, end: 20101226
  2. ANASTROZOLE [Suspect]
     Indication: BREAST CANCER
     Dosage: 1.0 MG
     Route: 048
     Dates: start: 20101201, end: 20120423

REACTIONS (3)
  - PAIN IN EXTREMITY [None]
  - DEPRESSION [None]
  - QUALITY OF LIFE DECREASED [None]
